FAERS Safety Report 9392773 (Version 1)
Quarter: 2013Q3

REPORT INFORMATION
  Report Type: Spontaneous
  Country: US (occurrence: None)
  Receive Date: 20130708
  Receipt Date: 20130708
  Transmission Date: 20140515
  Serious: Yes (Other)
  Sender: FDA-Public Use
  Company Number: None

PATIENT
  Sex: Female

DRUGS (1)
  1. WELCHOL [Suspect]
     Indication: BLOOD CHOLESTEROL INCREASED
     Dosage: JUNE 10 +11 (APPROX), 1 ENVELOPE, DINNER

REACTIONS (4)
  - Product solubility abnormal [None]
  - Vomiting [None]
  - Product quality issue [None]
  - Sensation of foreign body [None]
